FAERS Safety Report 8775487 (Version 2)
Quarter: 2012Q4

REPORT INFORMATION
  Report Type: Report from Study
  Country: US (occurrence: US)
  Receive Date: 20120911
  Receipt Date: 20120925
  Transmission Date: 20130627
  Serious: Yes (Other)
  Sender: FDA-Public Use
  Company Number: US-ABBOTT-12P-163-0977154-00

PATIENT
  Age: 32 Year
  Sex: Female
  Weight: 62.65 kg

DRUGS (7)
  1. HUMIRA [Suspect]
     Indication: COLITIS ULCERATIVE
     Dates: start: 20120303
  2. ASACOL [Concomitant]
     Indication: COLITIS ULCERATIVE
     Dosage: 6 Pills 1 Day
     Route: 048
     Dates: start: 20120303
  3. LIDEX [Concomitant]
     Indication: PSORIASIS
     Dosage: Face, scalp as required
     Route: 061
     Dates: start: 20120303
  4. PRENATAL VITAMINS [Concomitant]
     Indication: PRODUCT USED FOR UNKNOWN INDICATION
     Dosage: 1 Pill 1 Day
     Route: 048
     Dates: start: 20120303
  5. DHA [Concomitant]
     Indication: PRODUCT USED FOR UNKNOWN INDICATION
     Dosage: 1 Pill 1 Day
     Dates: start: 20120303
  6. COFFEE [Concomitant]
     Indication: PRODUCT USED FOR UNKNOWN INDICATION
     Dosage: 1-2 Servings daily (1.5 Servings 1 Day)
     Route: 048
     Dates: start: 20120303, end: 20120402
  7. BEER [Concomitant]
     Indication: PRODUCT USED FOR UNKNOWN INDICATION
     Dosage: 1-2 Servings daily (1.5 Servings 1 Day)
     Route: 048
     Dates: start: 20120315, end: 20120318

REACTIONS (4)
  - Abortion spontaneous [Unknown]
  - Eye infection [Recovered/Resolved]
  - Dyspepsia [Unknown]
  - Headache [Unknown]
